FAERS Safety Report 7336583-1 (Version None)
Quarter: 2011Q1

REPORT INFORMATION
  Report Type: 
  Country: None (occurrence: None)
  Receive Date: 20110307
  Receipt Date: 20110225
  Transmission Date: 20110831
  Serious: Yes (Hospitalization)
  Sender: FDA-Public Use
  Company Number: US-MERCK-1012USA01899

PATIENT
  Age: 53 Year
  Sex: Female

DRUGS (5)
  1. FOSAMAX [Suspect]
     Indication: OSTEOPENIA
     Route: 048
     Dates: start: 20050804, end: 20100314
  2. FOSAMAX [Suspect]
     Indication: OSTEOPOROSIS PROPHYLAXIS
     Route: 048
     Dates: start: 20050804, end: 20100314
  3. POTASSIUM (UNSPECIFIED) [Concomitant]
     Route: 065
     Dates: start: 20050101
  4. METOPROLOL [Concomitant]
     Route: 065
     Dates: start: 20040101
  5. VITAMINS (UNSPECIFIED) [Concomitant]
     Route: 065

REACTIONS (7)
  - CALCIUM DEFICIENCY [None]
  - LOW TURNOVER OSTEOPATHY [None]
  - PNEUMONIA [None]
  - FOOT FRACTURE [None]
  - FEMUR FRACTURE [None]
  - LUNG DISORDER [None]
  - VITAMIN D DEFICIENCY [None]
